FAERS Safety Report 8506959-5 (Version None)
Quarter: 2012Q3

REPORT INFORMATION
  Report Type: 
  Country: None (occurrence: None)
  Receive Date: 20120712
  Receipt Date: 20120702
  Transmission Date: 20120928
  Serious: Yes (Hospitalization, Other)
  Sender: FDA-Public Use
  Company Number: FR-ELI_LILLY_AND_COMPANY-FR201207000479

PATIENT
  Age: 86 Year
  Sex: Male
  Weight: 66 kg

DRUGS (9)
  1. EFFIENT [Suspect]
     Indication: ACUTE CORONARY SYNDROME
     Dosage: UNK
     Route: 048
     Dates: start: 20101001, end: 20120511
  2. PROCORALAN [Concomitant]
  3. ASPIRIN [Concomitant]
     Dosage: 75 MG, UNK
  4. REPAGLINIDE [Concomitant]
     Dosage: 1 MG, UNK
  5. LASIX [Concomitant]
     Dosage: 40 MG, UNK
  6. RAMIPRIL [Concomitant]
     Dosage: 2.5 MG, UNK
  7. ATORVASTATIN [Concomitant]
     Dosage: 80 MG, UNK
  8. FLUTICASONE PROPIONATE/SALMETEROL [Concomitant]
  9. PANTOPRAZOLE SODIUM [Concomitant]

REACTIONS (5)
  - RENAL FAILURE [None]
  - HAEMATURIA [None]
  - ACUTE CORONARY SYNDROME [None]
  - SYNCOPE [None]
  - HAEMATOMA [None]
